FAERS Safety Report 8417975-6 (Version None)
Quarter: 2012Q2

REPORT INFORMATION
  Report Type: 
  Country: None (occurrence: None)
  Receive Date: 20120531
  Receipt Date: 20120515
  Transmission Date: 20120825
  Serious: Yes (Other)
  Sender: FDA-Public Use
  Company Number: DKLU1080680

PATIENT
  Age: 36 Year
  Sex: Male

DRUGS (1)
  1. CHEMET [Suspect]
     Indication: METAL POISONING

REACTIONS (10)
  - CONDITION AGGRAVATED [None]
  - AGITATION [None]
  - NAUSEA [None]
  - HYPOAESTHESIA [None]
  - VISION BLURRED [None]
  - MUSCULAR WEAKNESS [None]
  - VOMITING [None]
  - AFFECT LABILITY [None]
  - GENERAL PHYSICAL HEALTH DETERIORATION [None]
  - MULTI-ORGAN FAILURE [None]
